FAERS Safety Report 10008576 (Version 1)
Quarter: 2014Q1

REPORT INFORMATION
  Report Type: Spontaneous
  Country: CH (occurrence: CH)
  Receive Date: 20140313
  Receipt Date: 20140313
  Transmission Date: 20141002
  Serious: Yes (Other)
  Sender: FDA-Public Use
  Company Number: CH-TEVA-466226ISR

PATIENT
  Age: 74 Year
  Sex: Male
  Weight: 84 kg

DRUGS (2)
  1. CIPROFLOXACIN [Suspect]
     Route: 065
     Dates: start: 201402
  2. FLAGYL [Concomitant]
     Dosage: 500 MILLIGRAM DAILY; AT NOON
     Route: 065

REACTIONS (4)
  - Weight decreased [Unknown]
  - Adverse event [Not Recovered/Not Resolved]
  - Pollakiuria [Not Recovered/Not Resolved]
  - Blood sodium decreased [Not Recovered/Not Resolved]
